FAERS Safety Report 18493243 (Version 1)
Quarter: 2020Q4

REPORT INFORMATION
  Report Type: Spontaneous
  Country: US (occurrence: US)
  Receive Date: 20201111
  Receipt Date: 20201111
  Transmission Date: 20210114
  Serious: No
  Sender: FDA-Public Use
  Company Number: US-TAKEDA-2020TUS044540

PATIENT
  Age: 57 Year
  Sex: Female

DRUGS (8)
  1. GATTEX [Suspect]
     Active Substance: TEDUGLUTIDE\WATER
     Indication: SHORT-BOWEL SYNDROME
     Dosage: 1.5 MILLIGRAM, QD
     Route: 058
     Dates: start: 20200811
  2. GATTEX [Suspect]
     Active Substance: TEDUGLUTIDE\WATER
     Indication: CROHN^S DISEASE
  3. GATTEX [Suspect]
     Active Substance: TEDUGLUTIDE\WATER
     Indication: SHORT-BOWEL SYNDROME
     Dosage: 1.5 MILLIGRAM, QD
     Route: 058
     Dates: start: 20200811
  4. GATTEX [Suspect]
     Active Substance: TEDUGLUTIDE\WATER
     Indication: CROHN^S DISEASE
  5. GATTEX [Suspect]
     Active Substance: TEDUGLUTIDE\WATER
     Indication: CROHN^S DISEASE
  6. GATTEX [Suspect]
     Active Substance: TEDUGLUTIDE\WATER
     Indication: CROHN^S DISEASE
  7. GATTEX [Suspect]
     Active Substance: TEDUGLUTIDE\WATER
     Indication: SHORT-BOWEL SYNDROME
     Dosage: 1.5 MILLIGRAM, QD
     Route: 058
     Dates: start: 20200811
  8. GATTEX [Suspect]
     Active Substance: TEDUGLUTIDE\WATER
     Indication: SHORT-BOWEL SYNDROME
     Dosage: 1.5 MILLIGRAM, QD
     Route: 058
     Dates: start: 20200811

REACTIONS (2)
  - No adverse event [Unknown]
  - Product dose omission issue [Unknown]

NARRATIVE: CASE EVENT DATE: 20201020
